FAERS Safety Report 6292277-5 (Version None)
Quarter: 2009Q3

REPORT INFORMATION
  Report Type: 
  Country: None (occurrence: None)
  Receive Date: 20090731
  Receipt Date: 20090727
  Transmission Date: 20100115
  Serious: Yes (Other)
  Sender: FDA-Public Use
  Company Number: US-SANOFI-SYNTHELABO-A03200903278

PATIENT
  Sex: Female

DRUGS (14)
  1. IRON [Concomitant]
     Indication: DRUG USE FOR UNKNOWN INDICATION
     Dosage: 27 MG 2 DAILY
     Route: 065
  2. PRILOSEC [Concomitant]
     Indication: DRUG USE FOR UNKNOWN INDICATION
     Route: 065
  3. DIOVAN [Concomitant]
     Indication: DRUG USE FOR UNKNOWN INDICATION
     Dosage: 160 / 25 MG DAILY
     Route: 065
  4. LOTREL [Concomitant]
     Indication: DRUG USE FOR UNKNOWN INDICATION
     Dosage: 5 / 10 MG DAILY
     Route: 065
  5. ADVICOR [Concomitant]
     Indication: DRUG USE FOR UNKNOWN INDICATION
     Dosage: 500 / 20 MG DAILY
     Route: 065
  6. GLYBURIDE AND METFORMIN HCL [Concomitant]
     Indication: DRUG USE FOR UNKNOWN INDICATION
     Dosage: 5/500 MG 3 TIMES A DAY
     Route: 065
  7. COREG [Concomitant]
     Indication: DRUG USE FOR UNKNOWN INDICATION
     Dosage: 12.5 MG, 2 DAILY
     Route: 065
  8. ASPIRIN [Concomitant]
     Indication: DRUG USE FOR UNKNOWN INDICATION
     Route: 065
  9. DECADRON [Concomitant]
     Indication: PREMEDICATION
     Route: 065
  10. ALOXI [Concomitant]
     Indication: PREMEDICATION
     Route: 065
  11. FLUOROURACIL [Suspect]
     Indication: COLON CANCER STAGE II
     Route: 040
     Dates: start: 20090318, end: 20090318
  12. FLUOROURACIL [Suspect]
     Dosage: 4200 MG OVER 46 HOURS
     Route: 041
     Dates: start: 20090318, end: 20090301
  13. LEUCOVORIN CALCIUM [Suspect]
     Indication: COLON CANCER STAGE II
     Route: 042
     Dates: start: 20090318, end: 20090318
  14. ELOXATIN [Suspect]
     Indication: COLON CANCER STAGE II
     Route: 042
     Dates: start: 20090318, end: 20090318

REACTIONS (2)
  - MUSCULAR WEAKNESS [None]
  - PARAPLEGIA [None]
